FAERS Safety Report 7989370-5 (Version None)
Quarter: 2011Q4

REPORT INFORMATION
  Report Type: 
  Country: None (occurrence: None)
  Receive Date: 20111219
  Receipt Date: 20111207
  Transmission Date: 20120403
  Serious: Yes (Other)
  Sender: FDA-Public Use
  Company Number: US-JNJFOC-20111203757

PATIENT
  Age: 45 Year
  Sex: Female

DRUGS (8)
  1. REMICADE [Suspect]
     Indication: COLITIS ULCERATIVE
     Route: 042
     Dates: start: 20101001
  2. HYDROCHLOROTHIAZIDE [Concomitant]
     Route: 065
  3. LOTREL [Concomitant]
     Route: 065
  4. ASACOL [Concomitant]
     Route: 065
  5. CALCIUM WITH VITAMIN D [Concomitant]
     Route: 065
  6. NEXIUM [Concomitant]
     Route: 065
  7. ASTELIN [Concomitant]
     Route: 065
  8. VITAMIN A [Concomitant]
     Route: 065

REACTIONS (1)
  - BREAST MASS [None]
